FAERS Safety Report 10926255 (Version 3)
Quarter: 2015Q3

REPORT INFORMATION
  Report Type: Spontaneous
  Country: SE (occurrence: SE)
  Receive Date: 20150318
  Receipt Date: 20150930
  Transmission Date: 20151125
  Serious: Yes (Other)
  Sender: FDA-Public Use
  Company Number: SE-009507513-1503SWE007295

PATIENT
  Sex: Female

DRUGS (1)
  1. SINGULAIR-AR [Suspect]
     Active Substance: MONTELUKAST SODIUM
     Indication: ASTHMA
     Dosage: UNK
     Route: 048

REACTIONS (5)
  - Depression [Unknown]
  - Disturbance in attention [Unknown]
  - Suicidal ideation [Unknown]
  - Nightmare [Unknown]
  - Mental disorder [Unknown]
